FAERS Safety Report 14819232 (Version 1)
Quarter: 2018Q2

REPORT INFORMATION
  Report Type: Report from Study
  Country: DE (occurrence: DE)
  Receive Date: 20180427
  Receipt Date: 20180427
  Transmission Date: 20180711
  Serious: Yes (Other)
  Sender: FDA-Public Use
  Company Number: DE-ACCORD-066309

PATIENT
  Age: 30 Year
  Sex: Female

DRUGS (6)
  1. PARACETAMOL [Suspect]
     Active Substance: ACETAMINOPHEN
  2. OLANZAPINE. [Suspect]
     Active Substance: OLANZAPINE
  3. LORAZEPAM. [Suspect]
     Active Substance: LORAZEPAM
  4. METHYLENEDIOXYPYROVALERONE [Suspect]
     Active Substance: METHYLENEDIOXYPYROVALERONE HYDROCHLORIDE
  5. QUETIAPINE. [Suspect]
     Active Substance: QUETIAPINE
  6. DICLOFENAC [Suspect]
     Active Substance: DICLOFENAC

REACTIONS (4)
  - Memory impairment [Unknown]
  - Toxicity to various agents [Unknown]
  - Confusional state [Unknown]
  - Homicide [Unknown]
